FAERS Safety Report 17141302 (Version 21)
Quarter: 2021Q3

REPORT INFORMATION
  Report Type: Spontaneous
  Country: US (occurrence: US)
  Receive Date: 20191211
  Receipt Date: 20210830
  Transmission Date: 20211014
  Serious: Yes (Other)
  Sender: FDA-Public Use
  Company Number: US-PFIZER INC-2019401958

PATIENT
  Age: 85 Year
  Sex: Female
  Weight: 92 kg

DRUGS (2)
  1. TOVIAZ [Suspect]
     Active Substance: FESOTERODINE FUMARATE
     Indication: URINARY INCONTINENCE
     Dosage: 50 MG, DAILY
     Route: 048
  2. TOVIAZ [Suspect]
     Active Substance: FESOTERODINE FUMARATE
     Indication: MICTURITION DISORDER
     Dosage: 8 MG, 1X/DAY (1 TABLET BY MOUTH ONCE A DAY AT NIGHT)
     Route: 048
     Dates: start: 2016

REACTIONS (14)
  - Malaise [Unknown]
  - Anxiety [Unknown]
  - Pain in extremity [Not Recovered/Not Resolved]
  - Visual acuity reduced [Unknown]
  - Overdose [Unknown]
  - Visual impairment [Unknown]
  - Expired product administered [Unknown]
  - Macular degeneration [Not Recovered/Not Resolved]
  - Dry eye [Unknown]
  - Ingrowing nail [Not Recovered/Not Resolved]
  - Lacrimation increased [Unknown]
  - Diabetes mellitus [Unknown]
  - Charles Bonnet syndrome [Not Recovered/Not Resolved]
  - Dysgraphia [Unknown]

NARRATIVE: CASE EVENT DATE: 201811
